FAERS Safety Report 8573947-2 (Version None)
Quarter: 2012Q2

REPORT INFORMATION
  Report Type: 
  Country: None (occurrence: None)
  Receive Date: 20120423
  Receipt Date: 20100203
  Transmission Date: 20120825
  Serious: Yes (Hospitalization)
  Sender: FDA-Public Use
  Company Number: PHEH2009US16464

PATIENT
  Age: 16 Year
  Sex: Male
  Weight: 56.6 kg

DRUGS (4)
  1. XOPENEX [Concomitant]
  2. ASPIRIN [Concomitant]
  3. SYMBICORT [Concomitant]
  4. EXJADE [Suspect]
     Indication: IRON OVERLOAD
     Dosage: 1750 MG DAILY, ORAL
     Route: 048

REACTIONS (2)
  - SICKLE CELL ANAEMIA WITH CRISIS [None]
  - CHEST PAIN [None]
